FAERS Safety Report 4542210-9 (Version None)
Quarter: 2004Q4

REPORT INFORMATION
  Report Type: 
  Country: None (occurrence: None)
  Receive Date: 20041230
  Receipt Date: 20041222
  Transmission Date: 20050328
  Serious: Yes (Hospitalization)
  Sender: FDA-Public Use
  Company Number: US-BRISTOL-MYERS SQUIBB COMPANY-12806501

PATIENT
  Sex: Female

DRUGS (2)
  1. COUMADIN [Suspect]
     Dosage: DURATION 6-7 YEARS
  2. VIOXX [Concomitant]

REACTIONS (1)
  - BURSITIS [None]
